FAERS Safety Report 5499602-3 (Version None)
Quarter: 2007Q4

REPORT INFORMATION
  Report Type: 
  Country: None (occurrence: None)
  Receive Date: 20071026
  Receipt Date: 20071017
  Transmission Date: 20080405
  Serious: Yes (Other)
  Sender: FDA-Public Use
  Company Number: US-PFIZER INC-2007087874

PATIENT
  Sex: Male
  Weight: 74.8 kg

DRUGS (11)
  1. LIPITOR [Suspect]
     Indication: BLOOD CHOLESTEROL INCREASED
  2. VITAMIN B6 [Suspect]
     Indication: CARDIAC DISORDER
  3. VITAMIN B-12 [Suspect]
     Indication: CARDIAC DISORDER
  4. FOLIC ACID [Suspect]
     Indication: CARDIAC DISORDER
  5. WELCHOL [Suspect]
     Indication: BLOOD CHOLESTEROL
  6. DYAZIDE [Concomitant]
     Indication: HYPERTENSION
  7. GLUCOSAMINE [Concomitant]
  8. ZETIA [Concomitant]
  9. ECOTRIN [Concomitant]
  10. CLONAZEPAM [Concomitant]
  11. AMOXICILLIN [Concomitant]
     Dosage: FREQ:BEFORE GOING TO THE DENTIST

REACTIONS (9)
  - BLOOD CHOLESTEROL INCREASED [None]
  - BLOOD CREATINE PHOSPHOKINASE INCREASED [None]
  - BLOOD TRIGLYCERIDES INCREASED [None]
  - FLATULENCE [None]
  - MUSCULAR WEAKNESS [None]
  - MYALGIA [None]
  - NERVE INJURY [None]
  - PAIN IN EXTREMITY [None]
  - SENSATION OF BLOOD FLOW [None]
